FAERS Safety Report 10077565 (Version 1)
Quarter: 2014Q2

REPORT INFORMATION
  Report Type: Spontaneous
  Country: US (occurrence: US)
  Receive Date: 20140414
  Receipt Date: 20140414
  Transmission Date: 20141212
  Serious: No
  Sender: FDA-Public Use
  Company Number: US-BANPHARM-20131826

PATIENT
  Age: 66 Year
  Sex: Female
  Weight: 90.72 kg

DRUGS (3)
  1. ALEVE LIQUID GELS 220 MG [Suspect]
     Indication: ARTHRITIS
     Dosage: 1 DF,
     Route: 048
     Dates: start: 20131016
  2. AMLODIPINE [Concomitant]
  3. IBUPROFEN [Concomitant]

REACTIONS (3)
  - Asthenia [Not Recovered/Not Resolved]
  - Nausea [Recovered/Resolved]
  - Vomiting [Recovered/Resolved]
